FAERS Safety Report 5588982-6 (Version None)
Quarter: 2008Q1

REPORT INFORMATION
  Report Type: 
  Country: None (occurrence: None)
  Receive Date: 20080111
  Receipt Date: 20060119
  Transmission Date: 20080703
  Serious: Yes (Hospitalization)
  Sender: FDA-Public Use
  Company Number: FR-MERCK-0601FRA00077

PATIENT
  Age: 79 Year
  Sex: Female

DRUGS (8)
  1. NOROXIN [Suspect]
     Indication: URINARY TRACT INFECTION
     Route: 048
     Dates: start: 20050924, end: 20051003
  2. FLUINDIONE [Suspect]
     Indication: CARDIAC VALVE PROSTHESIS USER
     Route: 048
     Dates: end: 20051002
  3. FLUINDIONE [Suspect]
     Route: 048
     Dates: start: 20051005
  4. HEPARIN CALCIUM [Suspect]
     Indication: CARDIAC VALVE PROSTHESIS USER
     Route: 058
     Dates: start: 20050927, end: 20051017
  5. BISOPROLOL [Concomitant]
     Indication: HYPERTENSION
     Route: 048
  6. NAFRONYL OXALATE [Concomitant]
     Indication: ANGIOPATHY
     Route: 048
  7. TRIMETAZIDINE HYDROCHLORIDE [Concomitant]
     Indication: ANGIOPATHY
     Route: 048
  8. LORAZEPAM [Concomitant]
     Indication: ANXIETY
     Route: 048

REACTIONS (2)
  - DRUG INTERACTION [None]
  - RECTAL HAEMORRHAGE [None]
